FAERS Safety Report 23125790 (Version 3)
Quarter: 2024Q1

REPORT INFORMATION
  Report Type: Spontaneous
  Country: US (occurrence: US)
  Receive Date: 20231030
  Receipt Date: 20240101
  Transmission Date: 20240409
  Serious: No
  Sender: FDA-Public Use
  Company Number: US-SA-SAC20231030000351

PATIENT
  Sex: Male

DRUGS (1)
  1. DUPIXENT [Suspect]
     Active Substance: DUPILUMAB
     Indication: Eosinophilic oesophagitis
     Dosage: 300 MG, QOW
     Route: 058
     Dates: start: 202209

REACTIONS (10)
  - Cough [Unknown]
  - Rhinorrhoea [Unknown]
  - Decreased appetite [Unknown]
  - Scratch [Not Recovered/Not Resolved]
  - Skin haemorrhage [Not Recovered/Not Resolved]
  - Pruritus [Not Recovered/Not Resolved]
  - Insomnia [Not Recovered/Not Resolved]
  - Rash [Not Recovered/Not Resolved]
  - Hypersensitivity [Not Recovered/Not Resolved]
  - Inappropriate schedule of product administration [Unknown]

NARRATIVE: CASE EVENT DATE: 20220901
